FAERS Safety Report 7676697-X (Version None)
Quarter: 2011Q3

REPORT INFORMATION
  Report Type: 
  Country: None (occurrence: None)
  Receive Date: 20110811
  Receipt Date: 20110804
  Transmission Date: 20111222
  Serious: Yes (Other)
  Sender: FDA-Public Use
  Company Number: NL-AMGEN-NLDSP2011025923

PATIENT
  Age: 46 Year
  Sex: Female
  Weight: 57 kg

DRUGS (4)
  1. METHOTREXATE SODIUM [Concomitant]
     Indication: RHEUMATOID ARTHRITIS
     Dosage: 25 MG, WEEKLY
     Route: 048
     Dates: start: 20100726
  2. CALCIUM CARBONATE [Concomitant]
     Indication: BLOOD CALCIUM DECREASED
     Dosage: 500 / 800 MG PER DAY
     Route: 048
     Dates: start: 20101221
  3. ENBREL [Suspect]
     Indication: RHEUMATOID ARTHRITIS
     Dosage: 50 MG, WEEKLY
     Dates: start: 20110301
  4. FOLIC ACID [Concomitant]
     Indication: RHEUMATOID ARTHRITIS
     Dosage: 10 MG, WEEKLY
     Route: 048
     Dates: start: 20100726

REACTIONS (3)
  - HYPERTENSION [None]
  - TOXIC SKIN ERUPTION [None]
  - PRURITUS GENERALISED [None]
